FAERS Safety Report 4576452-3 (Version None)
Quarter: 2005Q1

REPORT INFORMATION
  Report Type: 
  Country: None (occurrence: None)
  Receive Date: 20050207
  Receipt Date: 20050125
  Transmission Date: 20050727
  Serious: Yes (Other)
  Sender: FDA-Public Use
  Company Number: 2004097734

PATIENT
  Age: 77 Year
  Sex: Male
  Weight: 80 kg

DRUGS (8)
  1. CELEBREX [Suspect]
     Indication: ARTHRITIS
     Dosage: 200 MG (100 MG, 2 IN 1 D), ORAL
     Route: 048
     Dates: start: 20011026, end: 20020912
  2. ACETYLSALICYLIC ACID SRT [Suspect]
     Indication: ANGINA PECTORIS
     Dosage: 325 MG (325 MG, 1 IN 1 D), ORAL
     Route: 048
     Dates: start: 20010824, end: 20020912
  3. ATENOLOL [Concomitant]
  4. EPOETIN ALFA (EPOETIN ALFA) [Concomitant]
  5. IRON DEXTRAN (IRON DEXTRAN) [Concomitant]
  6. NITROGLYCERIN [Concomitant]
  7. CLOPIDOGREL BISULFATE [Concomitant]
  8. ENALAPRIL MALEATE [Concomitant]

REACTIONS (5)
  - ANGINA PECTORIS [None]
  - ATRIAL FIBRILLATION [None]
  - CONDITION AGGRAVATED [None]
  - DUODENAL ULCER HAEMORRHAGE [None]
  - HAEMOGLOBIN DECREASED [None]
